FAERS Safety Report 24052267 (Version 1)
Quarter: 2024Q3

REPORT INFORMATION
  Report Type: Spontaneous
  Country: IT (occurrence: IT)
  Receive Date: 20240704
  Receipt Date: 20240704
  Transmission Date: 20241016
  Serious: Yes (Other)
  Sender: SAMSUNG BIOEPIS
  Company Number: None

PATIENT
  Age: 47 Year
  Sex: Female

DRUGS (2)
  1. TRASTUZUMAB [Suspect]
     Active Substance: TRASTUZUMAB
     Indication: Hormone receptor positive breast cancer
     Dosage: START OF THERAPY 31/10/2023 - WEEKLY THERAPY - 4 WEEKS
     Route: 042
     Dates: start: 20231031, end: 20231121
  2. PACLITAXEL [Suspect]
     Active Substance: PACLITAXEL
     Indication: Hormone receptor positive breast cancer
     Dosage: START OF THERAPY 31/10/2023 - WEEKLY THERAPY - 4 WEEKS
     Route: 042
     Dates: start: 20231031, end: 20231121

REACTIONS (2)
  - Leukopenia [Recovering/Resolving]
  - Off label use [Unknown]

NARRATIVE: CASE EVENT DATE: 20231121
